FAERS Safety Report 9023440 (Version 1)
Quarter: 2013Q1

REPORT INFORMATION
  Report Type: Spontaneous
  Country: DE (occurrence: DE)
  Receive Date: 20130121
  Receipt Date: 20130121
  Transmission Date: 20140127
  Serious: Yes (Other)
  Sender: FDA-Public Use
  Company Number: DE-TEVA-379644GER

PATIENT
  Age: 0 Year
  Sex: Male
  Weight: 3.25 kg

DRUGS (6)
  1. DIAZEPAM [Suspect]
     Route: 064
  2. CIPRAMIL [Suspect]
     Route: 064
     Dates: start: 20100714, end: 20100910
  3. FEMIBION [Concomitant]
     Route: 064
  4. TAVOR [Concomitant]
     Route: 064
     Dates: start: 20100712, end: 20100715
  5. PROTHAZIN [Concomitant]
     Route: 064
     Dates: start: 20100715, end: 20100719
  6. BETAMETHASON [Concomitant]
     Route: 064

REACTIONS (4)
  - Agitation neonatal [Recovered/Resolved]
  - Feeding disorder neonatal [Recovered/Resolved]
  - Apnoea neonatal [Recovered/Resolved]
  - Bradycardia neonatal [Recovered/Resolved]
